FAERS Safety Report 7902042-8 (Version None)
Quarter: 2011Q4

REPORT INFORMATION
  Report Type: 
  Country: None (occurrence: None)
  Receive Date: 20111108
  Receipt Date: 20111101
  Transmission Date: 20120403
  Serious: Yes (Hospitalization)
  Sender: FDA-Public Use
  Company Number: US-GLAXOSMITHKLINE-A0952045A

PATIENT
  Age: 79 Year
  Sex: Female
  Weight: 66.8 kg

DRUGS (11)
  1. CAPECITABINE [Suspect]
     Indication: MASS
     Dosage: 1800MG TWICE PER DAY
     Route: 048
     Dates: start: 20111011
  2. TYLENOL-500 [Concomitant]
     Dosage: 325MG AS REQUIRED
  3. DIOVAN HCT [Concomitant]
     Dosage: 12.5MG PER DAY
  4. LAPATINIB [Suspect]
     Indication: MASS
     Dosage: 1250MG PER DAY
     Route: 048
     Dates: start: 20111011
  5. TRAMADOL HCL [Concomitant]
     Dosage: 50MG AS REQUIRED
  6. ALPRAZOLAM [Concomitant]
     Dosage: .25MG AT NIGHT
  7. ZYRTEC [Concomitant]
     Dosage: 10MG AS REQUIRED
  8. METOPROLOL [Concomitant]
     Dosage: 12.5MG PER DAY
  9. LIPITOR [Concomitant]
     Dosage: 10MG PER DAY
  10. MULTI-VITAMIN [Concomitant]
  11. ZOFRAN [Concomitant]
     Dosage: 8MG AS REQUIRED

REACTIONS (3)
  - HYPOTENSION [None]
  - DIARRHOEA [None]
  - RENAL FAILURE [None]
